FAERS Safety Report 5249214-1 (Version None)
Quarter: 2007Q1

REPORT INFORMATION
  Report Type: 
  Country: None (occurrence: None)
  Receive Date: 20070228
  Receipt Date: 20070221
  Transmission Date: 20070707
  Serious: Yes (Hospitalization, Disabling)
  Sender: FDA-Public Use
  Company Number: 2006UW27155

PATIENT
  Age: 60 Year
  Sex: Female
  Weight: 56.4 kg

DRUGS (11)
  1. NEXIUM [Suspect]
     Indication: GASTROOESOPHAGEAL REFLUX DISEASE
     Route: 048
     Dates: start: 20010621, end: 20060921
  2. NEXIUM [Suspect]
     Indication: BARRETT'S OESOPHAGUS
     Route: 048
     Dates: start: 20010621, end: 20060921
  3. NEXIUM [Suspect]
     Indication: COUGH
     Route: 048
     Dates: start: 20010621, end: 20060921
  4. NEXIUM [Suspect]
     Route: 048
     Dates: start: 20060921, end: 20061019
  5. NEXIUM [Suspect]
     Route: 048
     Dates: start: 20060921, end: 20061019
  6. NEXIUM [Suspect]
     Route: 048
     Dates: start: 20060921, end: 20061019
  7. CARAFATE [Concomitant]
  8. STEROID [Concomitant]
     Indication: UPPER RESPIRATORY TRACT INFECTION
     Dates: start: 20060801
  9. ANTIBIOTICS [Concomitant]
     Indication: UPPER RESPIRATORY TRACT INFECTION
     Dates: start: 20060801
  10. MAXZIDE [Concomitant]
     Indication: BLOOD PRESSURE
     Route: 048
     Dates: start: 20040101, end: 20060901
  11. DIFLUCAN [Concomitant]
     Indication: DYSPHAGIA
     Route: 048
     Dates: start: 20060922, end: 20060926

REACTIONS (7)
  - BRONCHITIS [None]
  - CHEST PAIN [None]
  - COUGH [None]
  - DECREASED APPETITE [None]
  - NAUSEA [None]
  - REFLUX OESOPHAGITIS [None]
  - RENAL FAILURE ACUTE [None]
